FAERS Safety Report 10419466 (Version 1)
Quarter: 2014Q3

REPORT INFORMATION
  Report Type: Spontaneous
  Country: JP (occurrence: None)
  Receive Date: 20140827
  Receipt Date: 20140827
  Transmission Date: 20150326
  Serious: Yes (Other)
  Sender: FDA-Public Use
  Company Number: 2014JUB00102

PATIENT
  Age: 36 Year
  Sex: Female
  Weight: 54.1 kg

DRUGS (2)
  1. PAROXETINE (PAROXETINE) [Suspect]
     Active Substance: PAROXETINE HYDROCHLORIDE
  2. OLANZAPINE (OLANZAPINE) UNKNOWN [Suspect]
     Active Substance: OLANZAPINE

REACTIONS (6)
  - Hypoglycaemia [None]
  - Cachexia [None]
  - Hyperphagia [None]
  - Altered state of consciousness [None]
  - Nausea [None]
  - Fatigue [None]
